FAERS Safety Report 12352137 (Version 1)
Quarter: 2016Q2

REPORT INFORMATION
  Report Type: Spontaneous
  Country: FR (occurrence: FR)
  Receive Date: 20160510
  Receipt Date: 20160510
  Transmission Date: 20160815
  Serious: Yes (Hospitalization)
  Sender: FDA-Public Use
  Company Number: FR-SA-2016SA089477

PATIENT
  Age: 73 Year
  Sex: Female

DRUGS (17)
  1. EZETROL [Suspect]
     Active Substance: EZETIMIBE
     Route: 048
     Dates: end: 20160417
  2. DAPSONE. [Concomitant]
     Active Substance: DAPSONE
  3. DAPSONE. [Concomitant]
     Active Substance: DAPSONE
  4. DAFALGAN [Concomitant]
     Active Substance: ACETAMINOPHEN
  5. ZOLPIDEM [Concomitant]
     Active Substance: ZOLPIDEM\ZOLPIDEM TARTRATE
  6. VOLTAREN [Concomitant]
     Active Substance: DICLOFENAC SODIUM
  7. NUROFEN [Concomitant]
     Active Substance: IBUPROFEN
  8. UVEDOSE [Concomitant]
     Active Substance: CHOLECALCIFEROL
  9. EXFORGE [Suspect]
     Active Substance: AMLODIPINE BESYLATE\VALSARTAN
     Route: 048
  10. ASPIRIN PROTECT [Concomitant]
     Active Substance: ASPIRIN
  11. COLCHICINE OPOCALCIUM [Suspect]
     Active Substance: COLCHICINE
     Route: 048
     Dates: end: 20160417
  12. ZYLORIC [Suspect]
     Active Substance: ALLOPURINOL
     Route: 048
  13. DAIVOBET [Concomitant]
     Active Substance: BETAMETHASONE DIPROPIONATE\CALCIPOTRIENE
  14. LASILIX [Suspect]
     Active Substance: FUROSEMIDE
     Route: 048
     Dates: end: 20160417
  15. ZYLORIC [Suspect]
     Active Substance: ALLOPURINOL
     Route: 048
  16. HYDROCHLOROTHIAZIDE/NEBIVOLOL [Concomitant]
  17. NOVOMIX [Concomitant]
     Active Substance: INSULIN ASPART

REACTIONS (5)
  - Anaemia [Recovering/Resolving]
  - Myopathy [Recovering/Resolving]
  - Transaminases increased [Recovering/Resolving]
  - General physical health deterioration [Recovering/Resolving]
  - Acute kidney injury [Recovering/Resolving]

NARRATIVE: CASE EVENT DATE: 201602
